FAERS Safety Report 10718500 (Version 1)
Quarter: 2015Q1

REPORT INFORMATION
  Report Type: Spontaneous
  Country: US (occurrence: US)
  Receive Date: 20150119
  Receipt Date: 20150119
  Transmission Date: 20150721
  Serious: Yes (Other)
  Sender: FDA-Public Use
  Company Number: US-CIPLA LTD.-2015US00372

PATIENT

DRUGS (1)
  1. LAMOTRIGINE. [Suspect]
     Active Substance: LAMOTRIGINE
     Dosage: UNK

REACTIONS (4)
  - Foetal exposure during pregnancy [Unknown]
  - Hypotonia [Unknown]
  - Motor developmental delay [Unknown]
  - Speech disorder developmental [Unknown]
